FAERS Safety Report 4808809-7 (Version None)
Quarter: 2005Q4

REPORT INFORMATION
  Report Type: 
  Country: None (occurrence: None)
  Receive Date: 20051025
  Receipt Date: 20051011
  Transmission Date: 20060501
  Serious: Yes (Other)
  Sender: FDA-Public Use
  Company Number: BR-GLAXOSMITHKLINE-A0577742A

PATIENT
  Sex: Male

DRUGS (1)
  1. SONRIDOR [Suspect]
     Route: 048

REACTIONS (1)
  - EPIGLOTTIC OEDEMA [None]
